FAERS Safety Report 9161701 (Version 1)
Quarter: 2013Q1

REPORT INFORMATION
  Report Type: Spontaneous
  Country: IL (occurrence: IL)
  Receive Date: 20130314
  Receipt Date: 20130314
  Transmission Date: 20140127
  Serious: Yes (Other)
  Sender: FDA-Public Use
  Company Number: IL-BIOGENIDEC-2012BI055041

PATIENT
  Sex: Female

DRUGS (1)
  1. TYSABRI [Suspect]
     Indication: EXPOSURE VIA PARTNER

REACTIONS (3)
  - Foetal distress syndrome [Unknown]
  - Umbilical cord abnormality [Unknown]
  - Low birth weight baby [Unknown]
